FAERS Safety Report 4978874-5 (Version None)
Quarter: 2006Q2

REPORT INFORMATION
  Report Type: 
  Country: None (occurrence: None)
  Receive Date: 20060417
  Receipt Date: 20060410
  Transmission Date: 20061013
  Serious: Yes (Hospitalization, Other)
  Sender: FDA-Public Use
  Company Number: GBR-2006-0002202

PATIENT
  Age: 37 Year
  Sex: Male
  Weight: 80 kg

DRUGS (3)
  1. TRANSTEC 35 (BUPRENORPHIN HYDROCHLORIDE) TRANSDERMAL PATCH [Suspect]
     Indication: INTERVERTEBRAL DISC OPERATION
     Dosage: 35 MCG, Q 1H, TRANSDERMAL, 17.5 MCG, Q 1 H, TRANSDERMAL
     Route: 062
     Dates: start: 20051101, end: 20060131
  2. TRANSTEC 35 (BUPRENORPHIN HYDROCHLORIDE) TRANSDERMAL PATCH [Suspect]
     Indication: INTERVERTEBRAL DISC OPERATION
     Dosage: 35 MCG, Q 1H, TRANSDERMAL, 17.5 MCG, Q 1 H, TRANSDERMAL
     Route: 062
     Dates: end: 20060217
  3. MORPHINE SULFATE [Suspect]
     Dosage: 20 MG, DAILY

REACTIONS (4)
  - ANOREXIA [None]
  - DRUG WITHDRAWAL SYNDROME [None]
  - PERIPHERAL VASCULAR DISORDER [None]
  - WEIGHT DECREASED [None]
